FAERS Safety Report 10802036 (Version 1)
Quarter: 2015Q1

REPORT INFORMATION
  Report Type: Spontaneous
  Country: US (occurrence: US)
  Receive Date: 20150217
  Receipt Date: 20150217
  Transmission Date: 20150721
  Serious: Yes (Death)
  Sender: FDA-Public Use
  Company Number: US-ROCHE-1537797

PATIENT
  Age: 81 Year
  Sex: Male

DRUGS (1)
  1. GAZYVA [Suspect]
     Active Substance: OBINUTUZUMAB
     Indication: CHRONIC LYMPHOCYTIC LEUKAEMIA
     Dosage: 100MG INFUSED OVER 4 HOURS
     Route: 065
     Dates: start: 20150211

REACTIONS (2)
  - Unresponsive to stimuli [Fatal]
  - Defaecation urgency [Fatal]
